FAERS Safety Report 4621496-6 (Version None)
Quarter: 2005Q1

REPORT INFORMATION
  Report Type: 
  Country: None (occurrence: None)
  Receive Date: 20050328
  Receipt Date: 20050322
  Transmission Date: 20050727
  Serious: No
  Sender: FDA-Public Use
  Company Number: 2005-126688-NL

PATIENT
  Age: 35 Year
  Sex: Female

DRUGS (2)
  1. MIRTAZAPINE [Suspect]
     Indication: DEPRESSION
     Dosage: 15 MG
     Dates: start: 20040901, end: 20050201
  2. INSULIN [Suspect]
     Dosage: DF

REACTIONS (2)
  - BLOOD GLUCOSE FLUCTUATION [None]
  - DRUG INTERACTION [None]
